FAERS Safety Report 7478912-4 (Version None)
Quarter: 2011Q2

REPORT INFORMATION
  Report Type: 
  Country: None (occurrence: None)
  Receive Date: 20110513
  Receipt Date: 20110506
  Transmission Date: 20111010
  Serious: Yes (Death)
  Sender: FDA-Public Use
  Company Number: US-ROCHE-776360

PATIENT
  Sex: Male
  Weight: 62.1 kg

DRUGS (12)
  1. PERTUZUMAB [Suspect]
     Indication: NEUROENDOCRINE CARCINOMA
     Dosage: LAST DOSE PRIOR TO SAE: 16 MAR 2011.
     Route: 042
     Dates: start: 20110124
  2. ASPIRIN [Concomitant]
     Indication: CARDIOVASCULAR EVENT PROPHYLAXIS
  3. DIPHENOXYLATE [Concomitant]
  4. LOVASTATIN [Concomitant]
  5. OCTREOTIDE ACETATE [Suspect]
     Indication: NEUROENDOCRINE CARCINOMA
     Dosage: LAST DOSE PRIOR TO SAE: 23 FEB 2011.
     Route: 030
     Dates: start: 20110124
  6. VERAPAMIL [Concomitant]
     Indication: HYPERTENSION
  7. VITAMIN B-12 [Concomitant]
  8. BEVACIZUMAB [Suspect]
     Indication: NEUROENDOCRINE CARCINOMA
     Dosage: LAST DOSE PRIOR TO SAE: 16 MAR 2011.
     Route: 042
     Dates: start: 20110124
  9. BETAMETHASONE [Concomitant]
     Route: 061
     Dates: start: 20110301
  10. PLAVIX [Concomitant]
     Indication: THROMBOSIS PROPHYLAXIS
     Dates: start: 20110101
  11. NEXIUM [Concomitant]
  12. LAMISIL [Concomitant]
     Indication: FUNGAL INFECTION

REACTIONS (1)
  - ABDOMINAL PAIN [None]
